FAERS Safety Report 5093051-8 (Version None)
Quarter: 2006Q3

REPORT INFORMATION
  Report Type: 
  Country: None (occurrence: None)
  Receive Date: 20060830
  Receipt Date: 20060818
  Transmission Date: 20061208
  Serious: Yes (Other)
  Sender: FDA-Public Use
  Company Number: PHBS2006BR12683

PATIENT
  Age: 9 Year
  Sex: Female
  Weight: 31 kg

DRUGS (2)
  1. TRILEPTAL [Suspect]
     Indication: EPILEPSY
     Dosage: 300 MG, BID
     Route: 048
     Dates: start: 20060818
  2. TEGRETOL [Suspect]
     Indication: EPILEPSY
     Dosage: HALF TABLET IN THE MORNING, HALF TABLET  IN
     Route: 048
     Dates: start: 20060801, end: 20060818

REACTIONS (2)
  - PARAESTHESIA ORAL [None]
  - SPEECH DISORDER [None]
